FAERS Safety Report 16148920 (Version 1)
Quarter: 2019Q2

REPORT INFORMATION
  Report Type: Spontaneous
  Country: US (occurrence: US)
  Receive Date: 20190402
  Receipt Date: 20190402
  Transmission Date: 20190711
  Serious: No
  Sender: FDA-Public Use
  Company Number: US-ASTRAZENECA-2019SE38876

PATIENT
  Age: 28627 Day
  Sex: Male
  Weight: 83.9 kg

DRUGS (1)
  1. BYDUREON BCISE [Suspect]
     Active Substance: EXENATIDE
     Indication: TYPE 2 DIABETES MELLITUS
     Route: 058
     Dates: start: 20190125

REACTIONS (5)
  - Injection site haemorrhage [Recovered/Resolved]
  - Device issue [Unknown]
  - Injection site extravasation [Unknown]
  - Product dose omission [Unknown]
  - Injection site pain [Recovered/Resolved]

NARRATIVE: CASE EVENT DATE: 20190125
